FAERS Safety Report 23302718 (Version 2)
Quarter: 2023Q4

REPORT INFORMATION
  Report Type: Spontaneous
  Country: JP (occurrence: JP)
  Receive Date: 20231215
  Receipt Date: 20231222
  Transmission Date: 20240110
  Serious: Yes (Other)
  Sender: FDA-Public Use
  Company Number: JP-JNJFOC-20231241676

PATIENT
  Age: 71 Year
  Sex: Female

DRUGS (4)
  1. ITRACONAZOLE [Interacting]
     Active Substance: ITRACONAZOLE
     Indication: Bronchopulmonary aspergillosis
     Dosage: DOSE UNKNOWN
     Route: 048
  2. TACROLIMUS [Interacting]
     Active Substance: TACROLIMUS
     Indication: Rheumatoid arthritis
     Dosage: DOSE UNKNOWN
     Route: 065
  3. ITRACONAZOLE [Suspect]
     Active Substance: ITRACONAZOLE
     Indication: Bronchopulmonary aspergillosis
     Dosage: DOSE UNKNOWN
     Route: 048
  4. PREDNISOLONE [Concomitant]
     Active Substance: PREDNISOLONE
     Indication: Rheumatoid arthritis
     Dosage: DOSE UNKNOWN
     Route: 065

REACTIONS (3)
  - Renal impairment [Unknown]
  - Diabetes mellitus [Unknown]
  - Drug interaction [Unknown]
